FAERS Safety Report 7672682-2 (Version None)
Quarter: 2011Q3

REPORT INFORMATION
  Report Type: 
  Country: None (occurrence: None)
  Receive Date: 20110804
  Receipt Date: 20110722
  Transmission Date: 20111222
  Serious: Yes (Disabling)
  Sender: FDA-Public Use
  Company Number: 2011AP001583

PATIENT
  Age: 76 Year
  Sex: Female

DRUGS (1)
  1. AMLODIPINE BESYLATE [Suspect]
     Indication: HYPERTENSION
     Dosage: 5 MG, QD, PO
     Route: 048
     Dates: start: 20110527, end: 20110627

REACTIONS (5)
  - HYPOTENSION [None]
  - DISTRACTIBILITY [None]
  - CONFUSIONAL STATE [None]
  - AGITATION [None]
  - ACTIVITIES OF DAILY LIVING IMPAIRED [None]
